FAERS Safety Report 8327429-3 (Version None)
Quarter: 2012Q2

REPORT INFORMATION
  Report Type: 
  Country: None (occurrence: None)
  Receive Date: 20120502
  Receipt Date: 20120426
  Transmission Date: 20120825
  Serious: Yes (Death, Other)
  Sender: FDA-Public Use
  Company Number: DE-AMGEN-DEUSP2012026340

PATIENT
  Age: 93 Year
  Sex: Female

DRUGS (2)
  1. PROLIA [Suspect]
     Indication: OSTEOPOROSIS POSTMENOPAUSAL
     Dosage: UNK
     Dates: start: 20111001
  2. WARFARIN SODIUM [Concomitant]
     Indication: THROMBOSIS

REACTIONS (2)
  - ARTERIAL THROMBOSIS [None]
  - CHEST PAIN [None]
